FAERS Safety Report 8965991 (Version 1)
Quarter: 2012Q4

REPORT INFORMATION
  Report Type: 
  Country: US (occurrence: US)
  Receive Date: 20121214
  Receipt Date: 20121214
  Transmission Date: 20130627
  Serious: Yes (Other)
  Sender: FDA-Public Use
  Company Number: CHPA2012US024734

PATIENT
  Age: 70 Year
  Sex: Female

DRUGS (4)
  1. MYOFLEX ANALGESIC CREME [Suspect]
     Indication: ARTHRITIS
     Dosage: Unk, as needed
     Route: 061
     Dates: start: 1997
  2. ADVIL//IBUPROFEN [Concomitant]
  3. LASIX [Concomitant]
  4. OXYGEN [Concomitant]

REACTIONS (1)
  - Hypertension [Not Recovered/Not Resolved]
